FAERS Safety Report 8691844 (Version 3)
Quarter: 2012Q4

REPORT INFORMATION
  Report Type: 
  Country: US (occurrence: US)
  Receive Date: 20120730
  Receipt Date: 20121207
  Transmission Date: 20130627
  Serious: Yes (Death, Hospitalization)
  Sender: FDA-Public Use
  Company Number: US-BAYER-2012-072400

PATIENT
  Age: 28 Year
  Sex: Female
  Weight: 69.39 kg

DRUGS (10)
  1. YASMIN [Suspect]
     Indication: CONTRACEPTION
     Dosage: UNK
     Dates: end: 200607
  2. YASMIN [Suspect]
     Indication: CONTRACEPTION
     Dosage: UNK
     Dates: start: 20070307, end: 20070402
  3. FOLIC ACID [Concomitant]
     Dosage: UNK UNK, QD
     Route: 048
     Dates: start: 20070307
  4. MULTIVITAMIN WITH MINERALS [Concomitant]
     Dosage: 1 mg, QD
     Route: 048
     Dates: start: 20070307
  5. RETIN-A MICRO [Concomitant]
     Dosage: 0.04 %, UNK
     Dates: start: 20070307
  6. PHENTERMINE [Concomitant]
     Indication: WEIGHT LOSS
  7. VALIUM [Concomitant]
     Dosage: 10 mg, UNK
  8. ATIVAN [Concomitant]
  9. RECTAL TYLENOL [Concomitant]
     Indication: FEVER
     Dosage: UNK
     Route: 054
  10. BENZODIAZEPINE [Concomitant]

REACTIONS (5)
  - Cerebrovascular accident [Fatal]
  - Pain [Fatal]
  - Injury [Fatal]
  - Anxiety [None]
  - Pain [None]
